FAERS Safety Report 25591821 (Version 1)
Quarter: 2025Q3

REPORT INFORMATION
  Report Type: Report from Study
  Country: US (occurrence: US)
  Receive Date: 20250722
  Receipt Date: 20250722
  Transmission Date: 20251021
  Serious: No
  Sender: VANDA PHARMACEUTICALS
  Company Number: US-VANDA PHARMACEUTICALS, INC-2024TASUS007391

PATIENT
  Sex: Female
  Weight: 19.048 kg

DRUGS (6)
  1. HETLIOZ LQ [Suspect]
     Active Substance: TASIMELTEON
     Indication: Smith-Magenis syndrome
     Dosage: 14 MILLIGRAM (3.5 ML), QD, AT THE SAME TIME EVERY NIGHT 1 HOUR BEFORE BEDTIME, WITHOUT FOOD.
     Route: 048
     Dates: start: 20231019
  2. HETLIOZ LQ [Suspect]
     Active Substance: TASIMELTEON
     Dosage: 14 MILLIGRAM (3.5 ML), QD, AT THE SAME TIME EVERY NIGHT 1 HOUR BEFORE BEDTIME, WITHOUT FOOD.
     Route: 048
     Dates: start: 20231020, end: 20250224
  3. FOCALIN [Concomitant]
     Active Substance: DEXMETHYLPHENIDATE HYDROCHLORIDE
     Indication: Product used for unknown indication
  4. JORNAY PM EXTENDED-RELEASE [Concomitant]
     Active Substance: METHYLPHENIDATE HYDROCHLORIDE
     Indication: Attention deficit hyperactivity disorder
  5. DESMOPRESSIN [Concomitant]
     Active Substance: DESMOPRESSIN
     Indication: Product used for unknown indication
  6. SERTRALINE [Concomitant]
     Active Substance: SERTRALINE HYDROCHLORIDE
     Indication: Product used for unknown indication

REACTIONS (4)
  - Middle insomnia [Unknown]
  - Product dose omission issue [Unknown]
  - Therapeutic product effect decreased [Unknown]
  - Drug ineffective [Unknown]
